FAERS Safety Report 11151429 (Version 1)
Quarter: 2015Q2

REPORT INFORMATION
  Report Type: Report from Study
  Country: DE (occurrence: DE)
  Receive Date: 20150601
  Receipt Date: 20150601
  Transmission Date: 20150821
  Serious: Yes (Hospitalization)
  Sender: FDA-Public Use
  Company Number: DE-BIOGENIDEC-2015BI072657

PATIENT
  Age: 58 Year
  Sex: Female
  Weight: 82 kg

DRUGS (4)
  1. AVONEX [Suspect]
     Active Substance: INTERFERON BETA-1A
     Indication: MULTIPLE SCLEROSIS
     Route: 030
     Dates: start: 19980328
  2. LIORESAL [Concomitant]
     Active Substance: BACLOFEN
     Indication: HYPOTONIA
     Dates: start: 2000
  3. MYDOCALM [Concomitant]
     Active Substance: TOLPERISONE
     Indication: BACK PAIN
     Dates: start: 2012
  4. ARCOXIA [Concomitant]
     Active Substance: ETORICOXIB
     Indication: BACK PAIN
     Dates: start: 2012

REACTIONS (1)
  - Calculus ureteric [Not Recovered/Not Resolved]

NARRATIVE: CASE EVENT DATE: 20150510
